FAERS Safety Report 25245797 (Version 1)
Quarter: 2025Q2

REPORT INFORMATION
  Report Type: Spontaneous
  Country: US (occurrence: None)
  Receive Date: 20250428
  Receipt Date: 20250428
  Transmission Date: 20250717
  Serious: Yes (Hospitalization)
  Sender: FDA-CTU
  Company Number: None

PATIENT
  Sex: Female

DRUGS (1)
  1. CYCLOSPORINE [Suspect]
     Active Substance: CYCLOSPORINE
     Indication: Lymphocytic leukaemia
     Dosage: 100 MG TWICE A DAY ORAL
     Route: 048
     Dates: start: 20241025

REACTIONS (4)
  - Nausea [None]
  - Vomiting [None]
  - Pyrexia [None]
  - Chills [None]
